FAERS Safety Report 9416498 (Version 1)
Quarter: 2013Q3

REPORT INFORMATION
  Report Type: Spontaneous
  Country: US (occurrence: US)
  Receive Date: 20130724
  Receipt Date: 20130724
  Transmission Date: 20140515
  Serious: Yes (Other)
  Sender: FDA-Public Use
  Company Number: PHHY2013US077628

PATIENT
  Age: 2 Year
  Sex: Female

DRUGS (2)
  1. IMATINIB [Suspect]
     Indication: CHRONIC MYELOID LEUKAEMIA
  2. ANTIBIOTICS [Concomitant]
     Indication: PNEUMONIA
     Dosage: UNK UKN, UNK
     Route: 051

REACTIONS (2)
  - Bone marrow reticulin fibrosis [Unknown]
  - Thrombocytosis [Unknown]
